FAERS Safety Report 6706541-6 (Version None)
Quarter: 2010Q2

REPORT INFORMATION
  Report Type: 
  Country: None (occurrence: None)
  Receive Date: 20100503
  Receipt Date: 20100428
  Transmission Date: 20101027
  Serious: Yes (Death, Hospitalization, Other)
  Sender: FDA-Public Use
  Company Number: PHHY2010BR26948

PATIENT
  Sex: Female

DRUGS (5)
  1. EXELON [Suspect]
     Indication: DEMENTIA ALZHEIMER'S TYPE
     Dosage: 1.5 MG, UNK
     Route: 048
     Dates: start: 20030101
  2. EXELON [Suspect]
     Dosage: 3 MG, BID
     Route: 048
     Dates: start: 20090101
  3. OMEPRAZOLE [Concomitant]
     Indication: GASTRIC DISORDER
     Dosage: 1 DF, QD
     Route: 048
  4. MELLARIL [Concomitant]
     Indication: AGITATION
     Dosage: 1 DF, QD
     Route: 048
  5. ROHYPNOL [Concomitant]
     Indication: INSOMNIA
     Dosage: 1 DF, QD
     Route: 048

REACTIONS (4)
  - GASTROINTESTINAL OBSTRUCTION [None]
  - LIVER DISORDER [None]
  - MULTI-ORGAN FAILURE [None]
  - VOMITING [None]
